FAERS Safety Report 5078097-8 (Version None)
Quarter: 2006Q3

REPORT INFORMATION
  Report Type: 
  Country: None (occurrence: None)
  Receive Date: 20060811
  Receipt Date: 20060724
  Transmission Date: 20061208
  Serious: Yes (Life-Threatening)
  Sender: FDA-Public Use
  Company Number: JP-AVENTIS-200612343JP

PATIENT
  Age: 66 Year
  Sex: Female
  Weight: 50 kg

DRUGS (11)
  1. ARAVA [Suspect]
     Indication: RHEUMATOID ARTHRITIS
     Route: 048
     Dates: start: 20030913, end: 20040130
  2. ARAVA [Suspect]
     Route: 048
     Dates: start: 20040131, end: 20040603
  3. ARAVA [Suspect]
     Route: 048
     Dates: start: 20040604, end: 20050325
  4. ARAVA [Suspect]
     Route: 048
     Dates: start: 20050326, end: 20060616
  5. FOSAMAC TABLETS [Suspect]
     Indication: OSTEOPOROSIS PROPHYLAXIS
     Route: 048
     Dates: start: 20030719, end: 20060616
  6. PREDNISOLONE [Concomitant]
     Indication: INFLAMMATION
     Route: 048
     Dates: start: 20030719
  7. GEFANIL [Concomitant]
     Indication: PROPHYLAXIS AGAINST GASTROINTESTINAL ULCER
     Route: 048
     Dates: start: 20010926, end: 20040507
  8. FERROMIA [Concomitant]
     Indication: IRON DEFICIENCY ANAEMIA
     Route: 048
     Dates: start: 20040214, end: 20040520
  9. TAKEPRON [Concomitant]
     Indication: PROPHYLAXIS AGAINST GASTROINTESTINAL ULCER
     Route: 048
     Dates: start: 20040508, end: 20051222
  10. LAPRAZOL [Concomitant]
     Indication: PROPHYLAXIS AGAINST GASTROINTESTINAL ULCER
     Route: 048
     Dates: start: 20051223, end: 20060616
  11. ELCITONIN [Concomitant]
     Indication: OSTEOPOROSIS PROPHYLAXIS
     Dosage: DOSE: 20 UNITS/2-4 WEEKS
     Route: 030
     Dates: start: 20010401, end: 20040909

REACTIONS (5)
  - BLADDER CANCER [None]
  - BLOOD LACTATE DEHYDROGENASE INCREASED [None]
  - MALAISE [None]
  - TRANSITIONAL CELL CANCER OF THE RENAL PELVIS AND URETER [None]
  - URETERAL DISORDER [None]
